FAERS Safety Report 14774431 (Version 1)
Quarter: 2018Q2

REPORT INFORMATION
  Report Type: Spontaneous
  Country: US (occurrence: US)
  Receive Date: 20180411
  Receipt Date: 20180411
  Transmission Date: 20180711
  Serious: Yes (Other)
  Sender: FDA-Public Use
  Company Number: None

PATIENT
  Sex: Female

DRUGS (16)
  1. TRAZODONE [Concomitant]
     Active Substance: TRAZODONE HYDROCHLORIDE
  2. MELOXICAM. [Concomitant]
     Active Substance: MELOXICAM
  3. OXYCODONE [Concomitant]
     Active Substance: OXYCODONE
  4. WARFARIN [Concomitant]
     Active Substance: WARFARIN
  5. LINZESS [Concomitant]
     Active Substance: LINACLOTIDE
  6. TOPIRAMATE. [Concomitant]
     Active Substance: TOPIRAMATE
  7. HUMIRA [Suspect]
     Active Substance: ADALIMUMAB
     Indication: MUSCLE SPASMS
     Dosage: ?          OTHER FREQUENCY:Q14D;?
     Route: 058
     Dates: start: 20180112
  8. MORPHINE SULF [Concomitant]
     Active Substance: MORPHINE SULFATE
  9. GABAPENTIN. [Concomitant]
     Active Substance: GABAPENTIN
  10. TOPIRAMATE. [Concomitant]
     Active Substance: TOPIRAMATE
  11. FUROSEMIDE. [Concomitant]
     Active Substance: FUROSEMIDE
  12. HYDROXYCHLOR [Concomitant]
     Active Substance: HYDROXYCHLOROQUINE
  13. RESTORA [Concomitant]
  14. CEVIME [Concomitant]
  15. RANITIDINE. [Concomitant]
     Active Substance: RANITIDINE
  16. ESOMEPRA [Concomitant]
     Active Substance: ESOMEPRAZOLE

REACTIONS (1)
  - Condition aggravated [None]
